FAERS Safety Report 7902935-1 (Version None)
Quarter: 2011Q4

REPORT INFORMATION
  Report Type: 
  Country: None (occurrence: None)
  Receive Date: 20111103
  Receipt Date: 20111027
  Transmission Date: 20120403
  Serious: Yes (Hospitalization)
  Sender: FDA-Public Use
  Company Number: WAES 1108USA03037

PATIENT
  Age: 62 Year
  Sex: Female

DRUGS (1)
  1. JANUVIA [Suspect]
     Indication: TYPE 2 DIABETES MELLITUS
     Dosage: PO
     Route: 048
     Dates: start: 20100302

REACTIONS (6)
  - CALCULUS URETERIC [None]
  - HYPOAESTHESIA [None]
  - POST PROCEDURAL COMPLICATION [None]
  - URETHRAL STENOSIS [None]
  - URETERIC STENOSIS [None]
  - THYROID CANCER [None]
